FAERS Safety Report 16269469 (Version 1)
Quarter: 2019Q2

REPORT INFORMATION
  Report Type: Spontaneous
  Country: US (occurrence: US)
  Receive Date: 20190328
  Receipt Date: 20190328
  Transmission Date: 20190711
  Serious: Yes (Other)
  Sender: FDA-Public Use
  Company Number: None

PATIENT
  Age: 75 Year
  Sex: Male
  Weight: 92.99 kg

DRUGS (11)
  1. MULTIVITAMIN [Concomitant]
     Active Substance: VITAMINS
  2. HUMIRA [Concomitant]
     Active Substance: ADALIMUMAB
  3. CALCIUM [Concomitant]
     Active Substance: CALCIUM
  4. MESALAMINE. [Concomitant]
     Active Substance: MESALAMINE
  5. AMLODIPINE/VALSARTAN [Suspect]
     Active Substance: AMLODIPINE\VALSARTAN
     Indication: PRODUCT USED FOR UNKNOWN INDICATION
     Dosage: ?          QUANTITY:|_| DUIIIEUIIC GISB ??76D;?
  6. ATORVASTATIN [Concomitant]
     Active Substance: ATORVASTATIN
  7. AZATHIOPRINE. [Concomitant]
     Active Substance: AZATHIOPRINE
  8. SULFASALAZINE. [Concomitant]
     Active Substance: SULFASALAZINE
  9. VALSARTAN. [Concomitant]
     Active Substance: VALSARTAN
  10. AMLODIPINE [Concomitant]
     Active Substance: AMLODIPINE BESYLATE
  11. TAMSULOSIN [Concomitant]
     Active Substance: TAMSULOSIN

REACTIONS (5)
  - Basal cell carcinoma [None]
  - Carcinogenicity [None]
  - Skin graft [None]
  - Squamous cell carcinoma [None]
  - Product contamination [None]

NARRATIVE: CASE EVENT DATE: 20181025
